FAERS Safety Report 5661991-4 (Version None)
Quarter: 2008Q2

REPORT INFORMATION
  Report Type: 
  Country: None (occurrence: None)
  Receive Date: 20080201
  Receipt Date: 20070924
  Transmission Date: 20081010
  Serious: Yes (Other)
  Sender: FDA-Public Use
  Company Number: 521097

PATIENT
  Age: 44 Year
  Sex: Male

DRUGS (13)
  1. RIBAVIRIN [Suspect]
     Indication: HEPATITIS C
  2. PEG-INTERFERON ALFA NOS (PEG-INTERFERON ALFA NOS) [Suspect]
     Indication: HEPATITIS C
  3. METFORMIN HCL [Concomitant]
  4. CLONAZEPAM [Concomitant]
  5. ROSIGLITAZONE [Concomitant]
  6. HYDROXYZINE [Concomitant]
  7. RISPERDAL [Concomitant]
  8. TEMAZEPAM [Concomitant]
  9. TRIHEXYPHENIDYL (TRIHEXYPHENIDYL HYDROCHLORIDE) [Concomitant]
  10. INSULIN (INSULIN) [Concomitant]
  11. GLIMEPIRIDE (GLIMEPRIDE) [Concomitant]
  12. VALSARTAN [Concomitant]
  13. FENOFIBRATE [Concomitant]

REACTIONS (3)
  - MENTAL DISORDER [None]
  - RETINAL EXUDATES [None]
  - RETINOPATHY [None]
